FAERS Safety Report 6626438-X (Version None)
Quarter: 2010Q1

REPORT INFORMATION
  Report Type: 
  Country: None (occurrence: None)
  Receive Date: 20100310
  Receipt Date: 20090911
  Transmission Date: 20100710
  Serious: No
  Sender: FDA-Public Use
  Company Number: US-ABBOTT-09P-163-0597394-00

PATIENT
  Sex: Female
  Weight: 74.91 kg

DRUGS (5)
  1. LUPRON DEPOT [Suspect]
     Indication: ENDOMETRIOSIS
     Route: 058
  2. PREVACID [Concomitant]
     Indication: DRUG USE FOR UNKNOWN INDICATION
  3. TYLENOL-500 [Concomitant]
     Indication: DRUG USE FOR UNKNOWN INDICATION
  4. DICLOFENAC [Concomitant]
     Indication: UTERINE SPASM
     Route: 048
  5. LEXAPRO [Concomitant]
     Indication: ANXIETY
     Route: 048

REACTIONS (5)
  - BACK PAIN [None]
  - HEADACHE [None]
  - NAUSEA [None]
  - PAIN [None]
  - PELVIC PAIN [None]
